FAERS Safety Report 9372430 (Version 2)
Quarter: 2013Q3

REPORT INFORMATION
  Report Type: Spontaneous
  Country: JP (occurrence: None)
  Receive Date: 20130625
  Receipt Date: 20130708
  Transmission Date: 20140515
  Serious: Yes (Other)
  Sender: FDA-Public Use
  Company Number: JP-20130058

PATIENT
  Age: 8 Decade
  Sex: Male

DRUGS (5)
  1. LIPIODOL ULTRA FLUIDE [Suspect]
     Indication: REGIONAL CHEMOTHERAPY
     Route: 013
  2. CISPLATIN (CISPLATIN) (CISPLATIN) [Concomitant]
  3. IACALL (CISPLATIN) (CISPLATIN) [Concomitant]
  4. EPIRUBICIN (EPIRUBICIN HYDROCHLORIDE (EPIRUBICIN HYDROCHLORIDE) [Concomitant]
  5. FLUOROURACIL (FLOROURACIL) (FLUOROURACIL) [Concomitant]

REACTIONS (2)
  - Anaphylactic reaction [None]
  - Off label use [None]
